FAERS Safety Report 5572304-0 (Version None)
Quarter: 2007Q4

REPORT INFORMATION
  Report Type: 
  Country: None (occurrence: None)
  Receive Date: 20071221
  Receipt Date: 20071211
  Transmission Date: 20080405
  Serious: Yes (Hospitalization)
  Sender: FDA-Public Use
  Company Number: IT-PFIZER INC-2007105002

PATIENT
  Sex: Female
  Weight: 13 kg

DRUGS (8)
  1. ZARONTIN [Suspect]
     Indication: EPILEPSY
     Dosage: DAILY DOSE:100MG
     Dates: start: 20060916, end: 20060923
  2. ZARONTIN [Suspect]
     Dosage: DAILY DOSE:200MG
     Dates: start: 20060924, end: 20061001
  3. ZARONTIN [Suspect]
     Dosage: DAILY DOSE:300MG
     Dates: start: 20061002, end: 20061005
  4. ZARONTIN [Suspect]
     Dosage: DAILY DOSE:150MG
     Dates: start: 20061006, end: 20061009
  5. ZARONTIN [Suspect]
     Dosage: DAILY DOSE:175MG
     Dates: start: 20061010, end: 20061117
  6. VALPROATE SODIUM [Suspect]
     Indication: EPILEPSY
     Dosage: DAILY DOSE:350MG
     Dates: start: 20050901, end: 20061005
  7. VALPROATE SODIUM [Suspect]
     Dosage: DAILY DOSE:400MG
     Dates: start: 20061006, end: 20061009
  8. VALPROATE SODIUM [Suspect]
     Dosage: DAILY DOSE:450MG
     Dates: start: 20061010, end: 20061117

REACTIONS (1)
  - ORAL HERPES [None]
